FAERS Safety Report 9643668 (Version 1)
Quarter: 2013Q4

REPORT INFORMATION
  Report Type: Report from Study
  Country: GT (occurrence: GT)
  Receive Date: 20131024
  Receipt Date: 20131024
  Transmission Date: 20140711
  Serious: Yes (Death, Hospitalization)
  Sender: FDA-Public Use
  Company Number: GT-ROCHE-1292862

PATIENT
  Age: 28 Year
  Sex: Male

DRUGS (1)
  1. BONVIVA [Suspect]
     Indication: FIBROUS DYSPLASIA OF BONE
     Route: 048
     Dates: start: 20130307

REACTIONS (2)
  - Myocardial infarction [Fatal]
  - Fluid retention [Unknown]
